FAERS Safety Report 6242204-1 (Version None)
Quarter: 2009Q2

REPORT INFORMATION
  Report Type: 
  Country: None (occurrence: None)
  Receive Date: 20090624
  Receipt Date: 20090619
  Transmission Date: 20091009
  Serious: Yes (Other)
  Sender: FDA-Public Use
  Company Number: TR-BRISTOL-MYERS SQUIBB COMPANY-14664304

PATIENT
  Age: 34 Year
  Sex: Male

DRUGS (3)
  1. CISPLATIN [Suspect]
     Indication: TESTIS CANCER
     Dosage: GIVEN ON DAYS 1-5.
  2. ETOPOSIDE [Suspect]
     Indication: TESTIS CANCER
     Dosage: GIVEN ON DAYS 1-5.
  3. BLEOMYCIN SULFATE [Suspect]
     Indication: TESTIS CANCER
     Dosage: TAKEN ON DAYS 1, 8 AND 15.

REACTIONS (1)
  - CEREBRAL INFARCTION [None]
